FAERS Safety Report 5694756-8 (Version None)
Quarter: 2008Q2

REPORT INFORMATION
  Report Type: 
  Country: None (occurrence: None)
  Receive Date: 20080404
  Receipt Date: 20080325
  Transmission Date: 20081010
  Serious: Yes (Hospitalization)
  Sender: FDA-Public Use
  Company Number: FR-JNJFOC-20080305716

PATIENT
  Sex: Female

DRUGS (6)
  1. DURAGESIC-100 [Suspect]
     Indication: OSTEOARTHRITIS
     Dosage: FOR ABOUT 2/3 WEEKS
     Route: 062
  2. LEXOMIL [Suspect]
     Indication: DEPRESSION
     Route: 048
  3. TEMESTA [Suspect]
     Indication: DEPRESSION
     Route: 048
  4. SPIRIVA [Suspect]
     Indication: EMPHYSEMA
     Route: 055
  5. PROZAC [Suspect]
     Indication: DEPRESSION
     Route: 048
  6. SYMBICORT [Concomitant]
     Indication: EMPHYSEMA
     Route: 055

REACTIONS (2)
  - HYPOTENSION [None]
  - RESPIRATORY DEPRESSION [None]
